FAERS Safety Report 7415509-6 (Version None)
Quarter: 2011Q2

REPORT INFORMATION
  Report Type: 
  Country: None (occurrence: None)
  Receive Date: 20110414
  Receipt Date: 20110405
  Transmission Date: 20111010
  Serious: Yes (Hospitalization)
  Sender: FDA-Public Use
  Company Number: US-ALEXION-A201100444

PATIENT
  Sex: Female

DRUGS (5)
  1. SOLIRIS [Suspect]
     Indication: PAROXYSMAL NOCTURNAL HAEMOGLOBINURIA
     Dosage: 900 MG, Q2W
     Route: 042
  2. PENTAMIDINE ISETHIONATE [Concomitant]
     Dosage: UNK
  3. TACROLIMUS [Concomitant]
     Dosage: UNK
  4. ACYCLOVIR [Concomitant]
     Dosage: UNK
  5. FLUCONAZOLE [Concomitant]
     Dosage: UNK

REACTIONS (3)
  - CAECITIS [None]
  - ABDOMINAL PAIN [None]
  - DIARRHOEA [None]
